FAERS Safety Report 18439263 (Version 1)
Quarter: 2020Q4

REPORT INFORMATION
  Report Type: Spontaneous
  Country: US (occurrence: US)
  Receive Date: 20201029
  Receipt Date: 20201029
  Transmission Date: 20210114
  Serious: No
  Sender: FDA-Public Use
  Company Number: US-009507513-2010USA010055

PATIENT
  Age: 39 Year

DRUGS (2)
  1. CUBICIN [Suspect]
     Active Substance: DAPTOMYCIN
     Dosage: 800 MG (7.84 MG/KG) EVERY 48 HOURS FOR FOUR TOTAL DOSES
     Route: 042
  2. ATORVASTATIN [Concomitant]
     Active Substance: ATORVASTATIN
     Dosage: 20 MG DAILY

REACTIONS (2)
  - Blood creatine phosphokinase increased [Recovered/Resolved]
  - Overdose [Unknown]
